FAERS Safety Report 7183895-0 (Version None)
Quarter: 2010Q4

REPORT INFORMATION
  Report Type: 
  Country: None (occurrence: None)
  Receive Date: 20101210
  Receipt Date: 20101130
  Transmission Date: 20110411
  Serious: Yes (Other)
  Sender: FDA-Public Use
  Company Number: 2010120010

PATIENT
  Age: 10 Year
  Sex: Male

DRUGS (3)
  1. TALOXA (FALBAMATE) [Suspect]
     Indication: LENNOX-GASTAUT SYNDROME
     Dosage: 7.5 MILLILITER (2.5 MILLILITER,3 IN 1 D)
     Dates: start: 20091110, end: 20101118
  2. DEPAKENE [Concomitant]
  3. URBANYL (CLOBAZAM) [Concomitant]

REACTIONS (2)
  - THROMBOCYTOPENIA [None]
  - TRANSAMINASES INCREASED [None]
